FAERS Safety Report 7801292-9 (Version None)
Quarter: 2011Q4

REPORT INFORMATION
  Report Type: 
  Country: None (occurrence: None)
  Receive Date: 20111007
  Receipt Date: 20091120
  Transmission Date: 20120403
  Serious: No
  Sender: FDA-Public Use
  Company Number: 2009BI038261

PATIENT
  Sex: Female

DRUGS (3)
  1. TYSABRI [Suspect]
     Route: 042
     Dates: start: 20081217, end: 20100505
  2. TYSABRI [Suspect]
     Route: 042
     Dates: start: 20110114
  3. TYSABRI [Suspect]
     Indication: MULTIPLE SCLEROSIS
     Route: 042
     Dates: start: 20070323, end: 20080225

REACTIONS (6)
  - BACK PAIN [None]
  - OSTEOARTHRITIS [None]
  - HYPOAESTHESIA [None]
  - FALL [None]
  - ARTHRALGIA [None]
  - PAIN IN EXTREMITY [None]
